FAERS Safety Report 7677313-3 (Version None)
Quarter: 2011Q3

REPORT INFORMATION
  Report Type: 
  Country: None (occurrence: None)
  Receive Date: 20110811
  Receipt Date: 20110808
  Transmission Date: 20111222
  Serious: Yes (Other)
  Sender: FDA-Public Use
  Company Number: JP-B.I. PHARMACEUTICALS,INC./RIDGEFIELD-2011-BP-18655NB

PATIENT
  Sex: Female
  Weight: 48 kg

DRUGS (5)
  1. FRANDOL S [Concomitant]
     Indication: ANGINA PECTORIS
     Dosage: 40 MG
     Route: 062
     Dates: start: 20091223
  2. AMIODARONE HYDROCHLORIDE [Concomitant]
     Indication: ATRIAL FIBRILLATION
     Dosage: 200 MG
     Route: 048
     Dates: start: 20091223
  3. PRADAXA [Suspect]
     Indication: ATRIAL FIBRILLATION
     Dosage: 220 MG
     Route: 048
     Dates: start: 20110625, end: 20110723
  4. TSUMURA GOREISAN [Concomitant]
     Dosage: 7.5 G
     Route: 048
     Dates: start: 20110614
  5. FERROUS CITRATE [Concomitant]
     Indication: ANAEMIA
     Dosage: 100 MG
     Route: 048
     Dates: start: 20110625

REACTIONS (1)
  - PLATELET COUNT DECREASED [None]
